FAERS Safety Report 9669139 (Version 2)
Quarter: 2013Q4

REPORT INFORMATION
  Report Type: Report from Study
  Country: US (occurrence: US)
  Receive Date: 20131105
  Receipt Date: 20131122
  Transmission Date: 20140711
  Serious: Yes (Death)
  Sender: FDA-Public Use
  Company Number: US-ROCHE-1298796

PATIENT
  Sex: Male
  Weight: 98 kg

DRUGS (2)
  1. XELODA [Suspect]
     Indication: PRODUCT USED FOR UNKNOWN INDICATION
     Dosage: TAKE 4 TABS TWICE A DAY
     Route: 048
  2. XELODA [Suspect]
     Route: 048
     Dates: start: 201308

REACTIONS (1)
  - Death [Fatal]
